FAERS Safety Report 13449263 (Version 1)
Quarter: 2017Q2

REPORT INFORMATION
  Report Type: Spontaneous
  Country: FR (occurrence: FR)
  Receive Date: 20170417
  Receipt Date: 20170417
  Transmission Date: 20170830
  Serious: Yes (Hospitalization)
  Sender: FDA-Public Use
  Company Number: FR-PFIZER INC-2017157593

PATIENT
  Age: 52 Year
  Sex: Male

DRUGS (13)
  1. WELLVONE [Concomitant]
     Active Substance: ATOVAQUONE
     Dosage: UNK
  2. TAHOR [Suspect]
     Active Substance: ATORVASTATIN CALCIUM
     Indication: TYPE IIA HYPERLIPIDAEMIA
     Dosage: 40 MG, 2X/DAY
     Route: 048
     Dates: start: 20170207, end: 20170309
  3. CORTANCYL [Concomitant]
     Active Substance: PREDNISONE
     Indication: IMMUNOSUPPRESSANT DRUG THERAPY
     Dosage: UNK
     Dates: start: 20160909
  4. STILNOX [Concomitant]
     Active Substance: ZOLPIDEM TARTRATE
     Dosage: UNK
  5. INEXIUM /01479302/ [Concomitant]
     Active Substance: ESOMEPRAZOLE MAGNESIUM
     Dosage: UNK
  6. KAYEXALATE [Concomitant]
     Active Substance: SODIUM POLYSTYRENE SULFONATE
     Dosage: UNK
  7. NEORAL [Interacting]
     Active Substance: CYCLOSPORINE
     Indication: HEART TRANSPLANT
     Dosage: 110 MG, 2X/DAY
     Route: 048
     Dates: start: 20160909
  8. DUPHALAC [Concomitant]
     Active Substance: LACTULOSE
     Dosage: UNK
  9. ROVALCYTE [Concomitant]
     Active Substance: VALGANCICLOVIR HYDROCHLORIDE
     Indication: CYTOMEGALOVIRUS INFECTION
     Dosage: UNK
  10. TRIATEC /00885601/ [Concomitant]
     Active Substance: RAMIPRIL
     Dosage: UNK
  11. CACIT D3 [Concomitant]
     Active Substance: CALCIUM\CHOLECALCIFEROL
     Dosage: UNK
  12. KARDEGIC [Concomitant]
     Active Substance: ASPIRIN LYSINE
     Dosage: UNK
  13. PREVISCAN /00789001/ [Concomitant]
     Active Substance: FLUINDIONE
     Dosage: UNK

REACTIONS (4)
  - Dysphagia [Not Recovered/Not Resolved]
  - Drug interaction [Not Recovered/Not Resolved]
  - Rhabdomyolysis [Not Recovered/Not Resolved]
  - Malnutrition [Not Recovered/Not Resolved]

NARRATIVE: CASE EVENT DATE: 201703
